FAERS Safety Report 9288201 (Version 1)
Quarter: 2013Q2

REPORT INFORMATION
  Report Type: Spontaneous
  Country: US (occurrence: None)
  Receive Date: 20130513
  Receipt Date: 20130513
  Transmission Date: 20140414
  Serious: Yes (Life-Threatening)
  Sender: FDA-Public Use
  Company Number: None

PATIENT
  Age: 60 Year
  Sex: Male
  Weight: 94.35 kg

DRUGS (1)
  1. MUSE [Suspect]
     Indication: ERECTILE DYSFUNCTION
     Dosage: 1
     Route: 066
     Dates: start: 20130509, end: 20130509

REACTIONS (10)
  - Burning sensation [None]
  - Pruritus [None]
  - Genital burning sensation [None]
  - Flushing [None]
  - Throat tightness [None]
  - Tongue disorder [None]
  - Local swelling [None]
  - Local swelling [None]
  - Local swelling [None]
  - Drug ineffective [None]
